FAERS Safety Report 8356791-0 (Version None)
Quarter: 2012Q2

REPORT INFORMATION
  Report Type: 
  Country: None (occurrence: None)
  Receive Date: 20120514
  Receipt Date: 20110419
  Transmission Date: 20120825
  Serious: No
  Sender: FDA-Public Use
  Company Number: US-TEVA-2011001920

PATIENT
  Sex: Female
  Weight: 70.37 kg

DRUGS (4)
  1. EXCEDRIN (MIGRAINE) [Concomitant]
     Indication: MIGRAINE
  2. NUVIGIL [Suspect]
     Dosage: 250 MILLIGRAM;
     Route: 048
     Dates: start: 20110101
  3. TYLENOL (CAPLET) [Concomitant]
     Indication: PAIN
  4. NUVIGIL [Suspect]
     Indication: FATIGUE
     Dosage: 250 MILLIGRAM;
     Route: 048
     Dates: start: 20110301, end: 20110301

REACTIONS (1)
  - FATIGUE [None]
